FAERS Safety Report 17774918 (Version 1)
Quarter: 2020Q2

REPORT INFORMATION
  Report Type: Spontaneous
  Country: CN (occurrence: CN)
  Receive Date: 20200513
  Receipt Date: 20200513
  Transmission Date: 20200714
  Serious: Yes (Other)
  Sender: FDA-Public Use
  Company Number: CN-ROCHE-2406798

PATIENT
  Age: 63 Year
  Sex: Male

DRUGS (16)
  1. HERCEPTIN [Suspect]
     Active Substance: TRASTUZUMAB
     Dosage: 9 CYCLES WITH XELOX REGIMEN
     Route: 065
     Dates: start: 20160927
  2. HERCEPTIN [Suspect]
     Active Substance: TRASTUZUMAB
     Dosage: 9 CYCLES
     Route: 065
     Dates: start: 20190623
  3. CAPECITABINE. [Suspect]
     Active Substance: CAPECITABINE
     Dosage: 9 CYCLES XELOX REGIMEN, 4 CYCLES WITH HERCEPTIN
     Route: 048
     Dates: start: 20160927
  4. CAPECITABINE. [Suspect]
     Active Substance: CAPECITABINE
     Indication: METASTASES TO LIVER
     Route: 048
     Dates: start: 20170101
  5. CAPECITABINE. [Suspect]
     Active Substance: CAPECITABINE
     Indication: GASTRIC CANCER
     Route: 048
     Dates: start: 20160101
  6. CAPECITABINE. [Suspect]
     Active Substance: CAPECITABINE
     Route: 048
     Dates: start: 20190101
  7. CAPECITABINE. [Suspect]
     Active Substance: CAPECITABINE
     Dosage: 4 CYCLES
     Route: 048
     Dates: start: 20190323
  8. HERCEPTIN [Suspect]
     Active Substance: TRASTUZUMAB
     Indication: METASTASES TO LIVER
     Route: 065
     Dates: start: 20170101
  9. HERCEPTIN [Suspect]
     Active Substance: TRASTUZUMAB
     Route: 065
     Dates: start: 20190101
  10. CAPECITABINE. [Suspect]
     Active Substance: CAPECITABINE
     Dosage: 9 CYCLES
     Route: 048
     Dates: start: 20190623
  11. HERCEPTIN [Suspect]
     Active Substance: TRASTUZUMAB
     Indication: GASTRIC CANCER
     Route: 065
     Dates: start: 20160101
  12. HERCEPTIN [Suspect]
     Active Substance: TRASTUZUMAB
     Dosage: 8 CYCLES
     Route: 065
     Dates: start: 20170921, end: 20180416
  13. HERCEPTIN [Suspect]
     Active Substance: TRASTUZUMAB
     Dosage: 4 CYCLES
     Route: 065
     Dates: start: 20190323
  14. OXALIPLATIN. [Suspect]
     Active Substance: OXALIPLATIN
     Indication: GASTRIC CANCER
     Route: 065
     Dates: start: 201601
  15. CAPECITABINE. [Suspect]
     Active Substance: CAPECITABINE
     Dosage: 8 CYCLES
     Route: 048
     Dates: start: 20170921, end: 20180416
  16. OXALIPLATIN. [Suspect]
     Active Substance: OXALIPLATIN
     Indication: METASTASES TO LIVER
     Dosage: 9 CYCLES XELOX REGIMEN
     Route: 065
     Dates: start: 20160927

REACTIONS (2)
  - Stoma site inflammation [Recovered/Resolved]
  - Drug intolerance [Unknown]

NARRATIVE: CASE EVENT DATE: 20190321
